FAERS Safety Report 19005433 (Version 1)
Quarter: 2021Q1

REPORT INFORMATION
  Report Type: Spontaneous
  Country: ES (occurrence: ES)
  Receive Date: 20210313
  Receipt Date: 20210313
  Transmission Date: 20210420
  Serious: Yes (Other)
  Sender: FDA-Public Use
  Company Number: ES-UCBSA-2021010970

PATIENT
  Age: 80 Year
  Sex: Female

DRUGS (10)
  1. LEVETIRACETAM. [Suspect]
     Active Substance: LEVETIRACETAM
     Indication: PARTIAL SEIZURES
     Dosage: 250 MG / 12 HOURS
     Route: 048
  2. AMOXICILLIN/CLAVULANIC ACID [Concomitant]
     Active Substance: AMOXICILLIN\CLAVULANIC ACID
     Indication: PRODUCT USED FOR UNKNOWN INDICATION
     Dosage: UNKNOWN DOSE
  3. LEVETIRACETAM. [Suspect]
     Active Substance: LEVETIRACETAM
     Dosage: 2 G/24 HOURS, INTRAVENOUS CATHETER
     Route: 042
  4. LEVETIRACETAM. [Suspect]
     Active Substance: LEVETIRACETAM
     Dosage: 1.5 G/24 HOURS
     Route: 042
  5. LEVODOPA/CARBIDOPA/ENTACAPONE [Concomitant]
     Active Substance: CARBIDOPA\ENTACAPONE\LEVODOPA
     Indication: PARKINSON^S DISEASE
     Dosage: UNKNOWN DOSE
  6. LEVETIRACETAM. [Suspect]
     Active Substance: LEVETIRACETAM
     Indication: SEIZURE
     Dosage: UNKNOWN DOSE
     Route: 042
  7. MIDAZOLAM. [Concomitant]
     Active Substance: MIDAZOLAM
     Indication: DYSPNOEA
     Dosage: UNKNOWN DOSE
     Route: 058
  8. MIDAZOLAM. [Concomitant]
     Active Substance: MIDAZOLAM
     Dosage: 60 MG / 24 HOURS
     Route: 058
  9. LACOSAMIDE. [Suspect]
     Active Substance: LACOSAMIDE
     Indication: SEIZURE
     Dosage: 50 MG/12 HOURS
     Route: 042
  10. LEVETIRACETAM. [Suspect]
     Active Substance: LEVETIRACETAM
     Dosage: 1 G/12 HOURS
     Route: 042

REACTIONS (5)
  - Altered state of consciousness [Unknown]
  - Pyuria [Unknown]
  - Leukocytosis [Unknown]
  - Seizure [Unknown]
  - Hypernatraemia [Unknown]
